FAERS Safety Report 9746355 (Version 1)
Quarter: 2013Q4

REPORT INFORMATION
  Report Type: Spontaneous
  Country: CN (occurrence: CN)
  Receive Date: 20131211
  Receipt Date: 20131211
  Transmission Date: 20140711
  Serious: Yes (Other)
  Sender: FDA-Public Use
  Company Number: CN-BRISTOL-MYERS SQUIBB COMPANY-19873454

PATIENT
  Sex: Male

DRUGS (2)
  1. BARACLUDE [Suspect]
     Indication: HEPATIC CIRRHOSIS
     Route: 048
     Dates: start: 201101, end: 201309
  2. TENOFOVIR [Suspect]
     Dates: start: 201209

REACTIONS (1)
  - Renal disorder [Unknown]
